FAERS Safety Report 4596081-5 (Version None)
Quarter: 2005Q1

REPORT INFORMATION
  Report Type: 
  Country: None (occurrence: None)
  Receive Date: 20050225
  Receipt Date: 20050209
  Transmission Date: 20050727
  Serious: Yes (Hospitalization)
  Sender: FDA-Public Use
  Company Number: DSA_25913_2005

PATIENT
  Age: 85 Year
  Sex: Female

DRUGS (4)
  1. TEMESTA [Suspect]
     Dosage: 1 MG Q DAY PO
     Route: 048
     Dates: end: 20041227
  2. DOLIPRANE [Suspect]
     Dosage: 1 G PRN PO
     Route: 048
     Dates: end: 20041227
  3. REQUIP [Suspect]
     Indication: DRUG USE FOR UNKNOWN INDICATION
     Dosage: 1 DF Q DAY PO
     Route: 048
     Dates: start: 20041227, end: 20041227
  4. LEVOTHYROX [Concomitant]

REACTIONS (6)
  - EYELID OEDEMA [None]
  - OEDEMA PERIPHERAL [None]
  - RASH GENERALISED [None]
  - RASH PRURITIC [None]
  - RASH PSORIAFORM [None]
  - TOXIC SKIN ERUPTION [None]
